FAERS Safety Report 16539898 (Version 1)
Quarter: 2019Q3

REPORT INFORMATION
  Report Type: Spontaneous
  Country: US (occurrence: US)
  Receive Date: 20190708
  Receipt Date: 20190708
  Transmission Date: 20191004
  Serious: No
  Sender: FDA-Public Use
  Company Number: US-PFIZER INC-2018240053

PATIENT
  Age: 63 Year
  Sex: Female

DRUGS (4)
  1. LIPITOR [Suspect]
     Active Substance: ATORVASTATIN CALCIUM
     Dosage: 20 MG, UNK
  2. LIPITOR [Suspect]
     Active Substance: ATORVASTATIN CALCIUM
     Dosage: 10 MG, DAILY
  3. LIPITOR [Suspect]
     Active Substance: ATORVASTATIN CALCIUM
     Dosage: 40 MG, UNK
  4. LIPITOR [Suspect]
     Active Substance: ATORVASTATIN CALCIUM
     Dosage: 20 MG, DAILY (20MG TABLET / QTY 30 / DAYS SUPPLY 30)

REACTIONS (1)
  - Arthralgia [Unknown]
